FAERS Safety Report 5587744-3 (Version None)
Quarter: 2008Q1

REPORT INFORMATION
  Report Type: 
  Country: None (occurrence: None)
  Receive Date: 20080108
  Receipt Date: 20080102
  Transmission Date: 20080703
  Serious: Yes (Hospitalization)
  Sender: FDA-Public Use
  Company Number: 2007SP024900

PATIENT
  Age: 67 Year
  Sex: Female
  Weight: 54.0234 kg

DRUGS (7)
  1. EPTIFIBATIDE (S-P) [Suspect]
     Indication: ANTICOAGULANT THERAPY
     Dosage: ONCE IV; IV
     Route: 042
     Dates: start: 20071116, end: 20071116
  2. EPTIFIBATIDE (S-P) [Suspect]
     Indication: ANTICOAGULANT THERAPY
     Dosage: ONCE IV; IV
     Route: 042
     Dates: start: 20071116, end: 20071117
  3. CLOPIDOGREL [Suspect]
     Indication: PERCUTANEOUS CORONARY INTERVENTION
     Dosage: 75 MG;QD;PO, 75 MG;ONCE;PO,
     Route: 048
     Dates: start: 20071111, end: 20071114
  4. CLOPIDOGREL [Suspect]
     Indication: PERCUTANEOUS CORONARY INTERVENTION
     Dosage: 75 MG;QD;PO, 75 MG;ONCE;PO,
     Route: 048
     Dates: start: 20071115, end: 20071115
  5. CLOPIDOGREL [Suspect]
     Indication: PERCUTANEOUS CORONARY INTERVENTION
     Dosage: 75 MG;QD;PO, 75 MG;ONCE;PO,
     Route: 048
     Dates: start: 20071116, end: 20071116
  6. HEPARIN [Suspect]
     Indication: ANTICOAGULANT THERAPY
     Dosage: 4 ML;QH;IV
     Route: 042
     Dates: start: 20071115, end: 20071116
  7. ACETYLSALICYLIC ACID SRT [Suspect]
     Indication: ANTICOAGULANT THERAPY
     Dosage: 162 MG;ONCE;PO
     Route: 048
     Dates: start: 20071115, end: 20071115

REACTIONS (3)
  - HAEMATOCRIT DECREASED [None]
  - HAEMOGLOBIN DECREASED [None]
  - WOUND SECRETION [None]
